FAERS Safety Report 23686904 (Version 1)
Quarter: 2024Q1

REPORT INFORMATION
  Report Type: Report from Study
  Country: JP (occurrence: JP)
  Receive Date: 20240329
  Receipt Date: 20240329
  Transmission Date: 20240409
  Serious: Yes (Hospitalization)
  Sender: FDA-Public Use
  Company Number: JP-RECORDATI RARE DISEASE INC.-2024002128

PATIENT

DRUGS (2)
  1. NEOPROFEN [Suspect]
     Active Substance: IBUPROFEN LYSINE
     Indication: Patent ductus arteriosus
     Dosage: DAILY DOSE 10 MILLIGRAM/KILOGRAM
     Route: 042
     Dates: start: 20230722, end: 20230722
  2. NEOPROFEN [Suspect]
     Active Substance: IBUPROFEN LYSINE
     Dosage: DAILY DOSE 10 MILLIGRAM/KILOGRAM
     Route: 042
     Dates: start: 20230801, end: 20230801

REACTIONS (4)
  - Bronchopulmonary dysplasia [Not Recovered/Not Resolved]
  - Retinopathy of prematurity [Recovering/Resolving]
  - Gastrointestinal haemorrhage [Recovering/Resolving]
  - Hypoglycaemia [Recovering/Resolving]

NARRATIVE: CASE EVENT DATE: 20230722
